FAERS Safety Report 22368919 (Version 2)
Quarter: 2023Q2

REPORT INFORMATION
  Report Type: Spontaneous
  Country: US (occurrence: US)
  Receive Date: 20230525
  Receipt Date: 20230604
  Transmission Date: 20230721
  Serious: Yes (Life-Threatening, Hospitalization)
  Sender: FDA-Public Use
  Company Number: US-TEVA-2023-US-2889334

PATIENT
  Age: 43 Year
  Sex: Male

DRUGS (8)
  1. DEXAMETHASONE [Suspect]
     Active Substance: DEXAMETHASONE
     Indication: COVID-19
     Route: 065
  2. INSULIN NOS [Suspect]
     Active Substance: INSULIN NOS
     Indication: Type 2 diabetes mellitus
     Route: 042
  3. INSULIN NOS [Suspect]
     Active Substance: INSULIN NOS
     Indication: Diabetic ketoacidosis
  4. HEPARIN [Suspect]
     Active Substance: HEPARIN SODIUM
     Indication: Deep vein thrombosis
     Dosage: ROUTE: {INFUSION}
     Route: 050
  5. HEPARIN [Suspect]
     Active Substance: HEPARIN SODIUM
     Indication: Hypertriglyceridaemia
  6. HEPARIN [Suspect]
     Active Substance: HEPARIN SODIUM
     Indication: Pancreatitis
  7. ATORVASTATIN [Concomitant]
     Active Substance: ATORVASTATIN
     Indication: Hypertriglyceridaemia
     Route: 065
  8. ATORVASTATIN [Concomitant]
     Active Substance: ATORVASTATIN
     Indication: Pancreatitis

REACTIONS (4)
  - Heparin-induced thrombocytopenia [Unknown]
  - Hyperinsulinaemic hypoglycaemia [Unknown]
  - Hyperglycaemia [Recovered/Resolved]
  - Off label use [Unknown]
